FAERS Safety Report 5616666-4 (Version None)
Quarter: 2008Q1

REPORT INFORMATION
  Report Type: 
  Country: None (occurrence: None)
  Receive Date: 20080207
  Receipt Date: 20080129
  Transmission Date: 20080703
  Serious: Yes (Hospitalization, Other)
  Sender: FDA-Public Use
  Company Number: PHBS2008BR01552

PATIENT
  Age: 59 Year
  Sex: Female

DRUGS (5)
  1. SULFASALAZINE [Concomitant]
     Indication: RHEUMATOID ARTHRITIS
     Dosage: 2 G/D
     Route: 065
  2. METHOTREXATE [Concomitant]
     Indication: RHEUMATOID ARTHRITIS
     Dosage: 15 MG, QW
     Route: 065
  3. HYDROXYCHLOROQUINE [Concomitant]
     Indication: RHEUMATOID ARTHRITIS
     Dosage: 400 MG/D
     Route: 065
  4. PREDNISONE TAB [Concomitant]
     Indication: RHEUMATOID ARTHRITIS
     Dosage: 10 MG/D
     Route: 065
  5. CYCLOSPORINE [Suspect]
     Indication: RHEUMATOID ARTHRITIS
     Dosage: 200 MG/D
     Route: 065

REACTIONS (5)
  - EXERESIS [None]
  - KNEE ARTHROPLASTY [None]
  - SKIN PAPILLOMA [None]
  - SQUAMOUS CELL CARCINOMA OF SKIN [None]
  - SYNOVITIS [None]
